FAERS Safety Report 4438221-4 (Version None)
Quarter: 2004Q3

REPORT INFORMATION
  Report Type: 
  Country: None (occurrence: None)
  Receive Date: 20040831
  Receipt Date: 20040621
  Transmission Date: 20050211
  Serious: No
  Sender: FDA-Public Use
  Company Number: US-GLAXOSMITHKLINE-A0515367A

PATIENT
  Age: 46 Year
  Sex: Male

DRUGS (4)
  1. WELLBUTRIN XL [Suspect]
     Indication: AGITATION
     Dosage: 300MG PER DAY
     Route: 048
     Dates: start: 20040601
  2. DIOVAN [Concomitant]
  3. METFORMIN HCL [Concomitant]
  4. BLOOD PRESSURE MEDICATION [Concomitant]
     Route: 048

REACTIONS (1)
  - ABDOMINAL PAIN UPPER [None]
